FAERS Safety Report 16165758 (Version 1)
Quarter: 2019Q2

REPORT INFORMATION
  Report Type: Spontaneous
  Country: FR (occurrence: FR)
  Receive Date: 20190406
  Receipt Date: 20190406
  Transmission Date: 20190711
  Serious: Yes (Hospitalization)
  Sender: FDA-Public Use
  Company Number: FR-009507513-1904FRA000955

PATIENT
  Age: 19 Year
  Sex: Female
  Weight: 44 kg

DRUGS (4)
  1. DESLORATADINE. [Suspect]
     Active Substance: DESLORATADINE
     Indication: TOXICITY TO VARIOUS AGENTS
     Dosage: 16 DOSAGE FORM, ONCE
     Route: 048
     Dates: start: 20180405, end: 20180405
  2. ACETAMINOPHEN. [Suspect]
     Active Substance: ACETAMINOPHEN
     Indication: TOXICITY TO VARIOUS AGENTS
     Dosage: 14 GRAM, ONCE
     Route: 048
     Dates: start: 20180405, end: 20180405
  3. FLAGYL (METRONIDAZOLE BENZOATE) [Suspect]
     Active Substance: METRONIDAZOLE BENZOATE
     Indication: TOXICITY TO VARIOUS AGENTS
     Dosage: 14 DOSAGE FORM, ONCE
     Route: 048
     Dates: start: 20180405, end: 20180405
  4. IBUPROFEN. [Suspect]
     Active Substance: IBUPROFEN
     Indication: TOXICITY TO VARIOUS AGENTS
     Dosage: 30 DOSAGE FORM, ONCE
     Route: 048
     Dates: start: 20180405, end: 20180405

REACTIONS (1)
  - Hepatocellular injury [Recovered/Resolved]

NARRATIVE: CASE EVENT DATE: 20180405
